FAERS Safety Report 10021950 (Version 1)
Quarter: 2014Q1

REPORT INFORMATION
  Report Type: Spontaneous
  Country: US (occurrence: None)
  Receive Date: 20140318
  Receipt Date: 20140318
  Transmission Date: 20141002
  Serious: Yes (Other)
  Sender: FDA-Public Use
  Company Number: None

PATIENT
  Age: 67 Year
  Sex: Male
  Weight: 164.66 kg

DRUGS (1)
  1. BELVIQ [Suspect]
     Indication: WEIGHT DECREASED
     Route: 048
     Dates: start: 20140313, end: 20140315

REACTIONS (2)
  - Back pain [None]
  - Gait disturbance [None]
